FAERS Safety Report 5016967-7 (Version None)
Quarter: 2006Q2

REPORT INFORMATION
  Report Type: 
  Country: None (occurrence: None)
  Receive Date: 20060526
  Receipt Date: 20060517
  Transmission Date: 20061013
  Serious: Yes (Other)
  Sender: FDA-Public Use
  Company Number: 2006-05-1537

PATIENT
  Age: 61 Year
  Sex: Female

DRUGS (2)
  1. DIPROSONE [Suspect]
     Indication: PSEUDOPAPILLOEDEMA
     Dosage: BID TOP-DERM
     Dates: start: 20050101
  2. THYROXIN [Concomitant]

REACTIONS (4)
  - HYPERSENSITIVITY [None]
  - LOSS OF CONSCIOUSNESS [None]
  - ROAD TRAFFIC ACCIDENT [None]
  - SOMNOLENCE [None]
